FAERS Safety Report 7260935-1 (Version None)
Quarter: 2011Q1

REPORT INFORMATION
  Report Type: 
  Country: None (occurrence: None)
  Receive Date: 20110130
  Receipt Date: 20101228
  Transmission Date: 20110831
  Serious: No
  Sender: FDA-Public Use
  Company Number: US-ABBOTT-10P-163-0693913-00

PATIENT
  Age: 35 Year
  Sex: Female

DRUGS (7)
  1. HUMIRA [Suspect]
     Dates: start: 20101228, end: 20101228
  2. ZYRTEC [Concomitant]
     Indication: HYPERSENSITIVITY
     Dosage: OTC
  3. HUMIRA [Suspect]
  4. SUDAFED 12 HOUR [Concomitant]
  5. HUMIRA [Suspect]
     Indication: CROHN'S DISEASE
     Dates: start: 20101214, end: 20101214
  6. SUDAFED 12 HOUR [Concomitant]
     Indication: SEASONAL ALLERGY
  7. ZYRTEC [Concomitant]

REACTIONS (2)
  - MYALGIA [None]
  - MILIA [None]
